FAERS Safety Report 11166130 (Version 2)
Quarter: 2015Q2

REPORT INFORMATION
  Report Type: Report from Study
  Country: BR (occurrence: BR)
  Receive Date: 20150605
  Receipt Date: 20150622
  Transmission Date: 20150821
  Serious: Yes (Hospitalization, Other)
  Sender: FDA-Public Use
  Company Number: PHHY2015BR065651

PATIENT
  Sex: Female
  Weight: 73 kg

DRUGS (3)
  1. METHOTREXATE [Concomitant]
     Active Substance: METHOTREXATE
     Indication: PRODUCT USED FOR UNKNOWN INDICATION
     Dosage: 1 DF, QW
     Route: 065
  2. ACLASTA [Suspect]
     Active Substance: ZOLEDRONIC ACID
     Indication: OSTEOPOROSIS
     Dosage: 1 DF, (1 APPLICATION/YEAR)
     Route: 042
     Dates: start: 2013
  3. ANASEPTIL [Concomitant]
     Indication: PRODUCT USED FOR UNKNOWN INDICATION
     Dosage: 1 DF, QW
     Route: 065

REACTIONS (8)
  - Fracture delayed union [Unknown]
  - Liver disorder [Recovering/Resolving]
  - Postoperative wound infection [Recovering/Resolving]
  - Rheumatic disorder [Recovering/Resolving]
  - Pneumonia [Recovering/Resolving]
  - Radius fracture [Recovering/Resolving]
  - Concomitant disease aggravated [Recovering/Resolving]
  - Decreased immune responsiveness [Recovering/Resolving]
